FAERS Safety Report 15065108 (Version 1)
Quarter: 2018Q2

REPORT INFORMATION
  Report Type: Spontaneous
  Country: US (occurrence: US)
  Receive Date: 20180626
  Receipt Date: 20180626
  Transmission Date: 20180711
  Serious: No
  Sender: FDA-Public Use
  Company Number: US-AMGEN-USASP2018085227

PATIENT
  Age: 38 Year
  Sex: Female

DRUGS (1)
  1. ENBREL [Suspect]
     Active Substance: ETANERCEPT
     Indication: RHEUMATOID ARTHRITIS
     Dosage: 50 MG, QWK
     Route: 065
     Dates: start: 201805

REACTIONS (10)
  - Injection site swelling [Unknown]
  - Dyspnoea [Unknown]
  - Injection site pruritus [Unknown]
  - Headache [Unknown]
  - Injection site pain [Unknown]
  - Wheezing [Unknown]
  - Injection site discolouration [Unknown]
  - Injection site warmth [Unknown]
  - Chest discomfort [Unknown]
  - Injection site erythema [Unknown]

NARRATIVE: CASE EVENT DATE: 20180615
